FAERS Safety Report 26168145 (Version 1)
Quarter: 2025Q4

REPORT INFORMATION
  Report Type: Spontaneous
  Country: US (occurrence: US)
  Receive Date: 20251217
  Receipt Date: 20251217
  Transmission Date: 20260117
  Serious: No
  Sender: TORRENT PHARMA INC.
  Company Number: US-TORRENT-00014658

PATIENT
  Age: 25 Year
  Sex: Female
  Weight: 70 kg

DRUGS (1)
  1. PANTOPRAZOLE SODIUM [Suspect]
     Active Substance: PANTOPRAZOLE SODIUM
     Indication: Gastrooesophageal reflux disease
     Dosage: IN MORNING ONCE A DAY
     Route: 048

REACTIONS (2)
  - Abdominal discomfort [Not Recovered/Not Resolved]
  - Hypersensitivity [Not Recovered/Not Resolved]
